FAERS Safety Report 5059018-0 (Version None)
Quarter: 2006Q3

REPORT INFORMATION
  Report Type: 
  Country: None (occurrence: None)
  Receive Date: 20060719
  Receipt Date: 20060713
  Transmission Date: 20061208
  Serious: Yes (Hospitalization)
  Sender: FDA-Public Use
  Company Number: TAP2006Q01197

PATIENT
  Age: 33 Year
  Sex: Female
  Weight: 61.6 kg

DRUGS (2)
  1. LUPRON DEPOT-3 [Suspect]
     Indication: ENDOMETRIOSIS
     Dosage: 11.25 MG, 1 IN 3 M, INTRAMUSCULAR
     Route: 030
     Dates: start: 20060515
  2. LUPRON DEPOT-3 [Suspect]
     Indication: PELVIC PAIN
     Dosage: 11.25 MG, 1 IN 3 M, INTRAMUSCULAR
     Route: 030
     Dates: start: 20060515

REACTIONS (1)
  - VISUAL FIELD DEFECT [None]
